FAERS Safety Report 8789769 (Version 1)
Quarter: 2012Q4

REPORT INFORMATION
  Report Type: Spontaneous
  Country: US (occurrence: None)
  Receive Date: 20120911
  Receipt Date: 20120911
  Transmission Date: 20130627
  Serious: No
  Sender: FDA-Public Use
  Company Number: None

PATIENT
  Age: 43 Year
  Sex: Female

DRUGS (1)
  1. SUTENT [Suspect]
     Indication: CANCER
     Route: 048
     Dates: start: 20120712, end: 20120830

REACTIONS (3)
  - Skin disorder [None]
  - Pain [None]
  - Discomfort [None]
